FAERS Safety Report 6328024-8 (Version None)
Quarter: 2009Q3

REPORT INFORMATION
  Report Type: 
  Country: None (occurrence: None)
  Receive Date: 20090825
  Receipt Date: 20080828
  Transmission Date: 20100115
  Serious: No
  Sender: FDA-Public Use
  Company Number: US-ABBOTT-08P-163-0472796-00

PATIENT
  Sex: Female

DRUGS (1)
  1. SYNTHROID [Suspect]
     Indication: THYROID DISORDER
     Route: 048
     Dates: start: 19960101

REACTIONS (2)
  - HOT FLUSH [None]
  - PALPITATIONS [None]
